FAERS Safety Report 11952362 (Version 10)
Quarter: 2017Q4

REPORT INFORMATION
  Report Type: Spontaneous
  Country: US (occurrence: US)
  Receive Date: 20160126
  Receipt Date: 20171116
  Transmission Date: 20180320
  Serious: Yes (Death, Hospitalization)
  Sender: FDA-Public Use
  Company Number: US-ACTELION PHARMACEUTICALS US, INC.-A-US2016-130353

PATIENT
  Age: 56 Year
  Sex: Female

DRUGS (15)
  1. BRIMONIDINE [Concomitant]
     Active Substance: BRIMONIDINE TARTRATE
  2. TORSEMIDE. [Concomitant]
     Active Substance: TORSEMIDE
     Dosage: 20 MG, TID
     Dates: start: 2017
  3. SPIRONOLACTONE. [Concomitant]
     Active Substance: SPIRONOLACTONE
     Dosage: 50 QAM AND 50 QPM
     Dates: start: 2016
  4. SILDENAFIL. [Concomitant]
     Active Substance: SILDENAFIL
     Indication: PULMONARY ARTERIAL HYPERTENSION
     Dosage: 20 MG, TID
     Dates: start: 2013
  5. TRACLEER [Suspect]
     Active Substance: BOSENTAN
     Indication: PULMONARY ARTERIAL HYPERTENSION
     Dosage: 125 MG, BID
     Route: 048
     Dates: start: 20130222, end: 20171004
  6. DOXYCYCLINE. [Concomitant]
     Active Substance: DOXYCYCLINE
  7. FLUTICASONE. [Concomitant]
     Active Substance: FLUTICASONE
  8. METOLAZONE. [Concomitant]
     Active Substance: METOLAZONE
  9. POTASSIUM [Concomitant]
     Active Substance: POTASSIUM
  10. LEXAPRO [Concomitant]
     Active Substance: ESCITALOPRAM OXALATE
  11. XOPENEX [Concomitant]
     Active Substance: LEVALBUTEROL HYDROCHLORIDE
  12. ORENITRAM [Suspect]
     Active Substance: TREPROSTINIL
     Indication: PRODUCT USED FOR UNKNOWN INDICATION
     Dosage: 0.75 MG, BID
     Route: 065
     Dates: start: 2016
  13. ACYCLOVIR. [Concomitant]
     Active Substance: ACYCLOVIR
  14. MONTELUKAST [Concomitant]
     Active Substance: MONTELUKAST SODIUM
  15. DORZOLAMIDE [Concomitant]
     Active Substance: DORZOLAMIDE

REACTIONS (19)
  - Cor pulmonale [Unknown]
  - Confusional state [Unknown]
  - Memory impairment [Unknown]
  - Headache [Unknown]
  - Cardiac failure congestive [Recovered/Resolved]
  - Asthenia [Unknown]
  - Disturbance in attention [Unknown]
  - Irritability [Unknown]
  - Sinusitis [Unknown]
  - Pulmonary hypertension [Fatal]
  - Fatigue [Unknown]
  - Decreased appetite [Unknown]
  - Influenza [Unknown]
  - Dizziness [Unknown]
  - Malaise [Unknown]
  - Nausea [Unknown]
  - Lung infection [Unknown]
  - Diarrhoea [Unknown]
  - Hypotension [Unknown]

NARRATIVE: CASE EVENT DATE: 201606
